FAERS Safety Report 18151466 (Version 2)
Quarter: 2021Q2

REPORT INFORMATION
  Report Type: Spontaneous
  Country: DE (occurrence: DE)
  Receive Date: 20200814
  Receipt Date: 20210630
  Transmission Date: 20210717
  Serious: Yes (Hospitalization)
  Sender: FDA-Public Use
  Company Number: DE-ALLERGAN-2030038US

PATIENT
  Sex: Male

DRUGS (13)
  1. PREDNISOLONE UNK [Suspect]
     Active Substance: PREDNISOLONE
     Indication: PRODUCT USED FOR UNKNOWN INDICATION
     Dosage: LAST INTAKE UNTIL MARCH
     Route: 065
     Dates: end: 202003
  2. METOPROLOL. [Concomitant]
     Active Substance: METOPROLOL
     Dosage: 95 MG 1?0?1?0
  3. METAMIZOL [Concomitant]
     Active Substance: METAMIZOLE SODIUM
     Dosage: 500 MG, 1?1?1?1
  4. SELEN?LOGES 300?G [Concomitant]
     Dosage: 300 ?G, 1?0?0?0
  5. RAMIPRIL. [Concomitant]
     Active Substance: RAMIPRIL
     Dosage: 5 MG, 1?0?0?0
  6. FUROSEMID [Concomitant]
     Active Substance: FUROSEMIDE
     Dosage: 20 MG, 0.5?0?0?0
  7. CERUSSIT [Concomitant]
     Dosage: 1?0?0?0
  8. OMEGA 3 GLENMARK 1000MG [Concomitant]
     Dosage: 1000 MG 1?1?1?0
  9. MAGNESIUM OXIDE. [Concomitant]
     Active Substance: MAGNESIUM OXIDE
     Dosage: 1?1?0?0
  10. MISTEL [Concomitant]
     Dosage: 1?0?0?0
  11. ZYTIGA [Suspect]
     Active Substance: ABIRATERONE ACETATE
     Indication: PRODUCT USED FOR UNKNOWN INDICATION
     Dosage: 500 MG 2?0?0?0
     Route: 065
  12. METFORMIN [Concomitant]
     Active Substance: METFORMIN HYDROCHLORIDE
     Dosage: 850 MG, 0?1?0?0
  13. ACETYLSALICYLIC ACID [Concomitant]
     Active Substance: ASPIRIN
     Dosage: 100 MG, 0?1?0?0

REACTIONS (4)
  - Hypertension [Unknown]
  - Product administration error [Unknown]
  - Electrolyte imbalance [Unknown]
  - Dyspnoea [Unknown]

NARRATIVE: CASE EVENT DATE: 20200301
